FAERS Safety Report 25479036 (Version 1)
Quarter: 2025Q2

REPORT INFORMATION
  Report Type: Spontaneous
  Country: US (occurrence: None)
  Receive Date: 20250624
  Receipt Date: 20250624
  Transmission Date: 20250717
  Serious: Yes (Other)
  Sender: FDA-CTU
  Company Number: None

PATIENT
  Age: 87 Year
  Sex: Female

DRUGS (1)
  1. JARDIANCE [Suspect]
     Active Substance: EMPAGLIFLOZIN
     Dosage: FREQUENCY : DAILY;?
     Route: 048
     Dates: start: 20250430, end: 20250430

REACTIONS (4)
  - Vomiting [None]
  - Diarrhoea [None]
  - Abdominal pain [None]
  - Asthenia [None]

NARRATIVE: CASE EVENT DATE: 20250430
